FAERS Safety Report 15327192 (Version 8)
Quarter: 2020Q1

REPORT INFORMATION
  Report Type: Spontaneous
  Country: US (occurrence: US)
  Receive Date: 20180828
  Receipt Date: 20200313
  Transmission Date: 20200409
  Serious: Yes (Hospitalization, Other)
  Sender: FDA-Public Use
  Company Number: US-BRISTOL-MYERS SQUIBB COMPANY-BMS-2018-079788

PATIENT
  Sex: Female
  Weight: 97.07 kg

DRUGS (2)
  1. ORENCIA [Suspect]
     Active Substance: ABATACEPT
     Indication: RHEUMATOID ARTHRITIS
     Dosage: 125 MG, QWK
     Route: 058
     Dates: start: 201803
  2. ORENCIA [Suspect]
     Active Substance: ABATACEPT
     Indication: PRODUCT USED FOR UNKNOWN INDICATION
     Dosage: 125 MG, QWK
     Route: 058
     Dates: start: 20181002

REACTIONS (7)
  - Arthropathy [Unknown]
  - Pneumonia [Unknown]
  - Weight increased [Unknown]
  - Pain [Unknown]
  - Respiratory tract infection [Recovered/Resolved]
  - Ear disorder [Unknown]
  - Product dose omission [Unknown]
